FAERS Safety Report 5207477-2 (Version None)
Quarter: 2006Q4

REPORT INFORMATION
  Report Type: 
  Country: None (occurrence: None)
  Receive Date: 20061030
  Receipt Date: 20060705
  Transmission Date: 20070319
  Serious: No
  Sender: FDA-Public Use
  Company Number: 2006CT000460

PATIENT
  Age: 54 Year
  Sex: Female
  Weight: 57.1532 kg

DRUGS (4)
  1. VENTAVIS [Suspect]
     Indication: PULMONARY HYPERTENSION
     Dosage: 5 UG;5XD;INH
     Route: 055
     Dates: start: 20051201
  2. PREDNISONE [Concomitant]
  3. PROTONIX [Concomitant]
  4. SILDENAFIL CITRATE [Concomitant]

REACTIONS (2)
  - COUGH [None]
  - DYSURIA [None]
